FAERS Safety Report 7591130-4 (Version None)
Quarter: 2011Q3

REPORT INFORMATION
  Report Type: 
  Country: None (occurrence: None)
  Receive Date: 20110705
  Receipt Date: 20110623
  Transmission Date: 20111222
  Serious: Yes (Hospitalization, Other)
  Sender: FDA-Public Use
  Company Number: US-ASTRAZENECA-2011SE36951

PATIENT
  Age: 65 Year
  Sex: Female

DRUGS (2)
  1. CYMBALTA [Concomitant]
  2. NEXIUM [Suspect]
     Route: 048

REACTIONS (4)
  - FIBROMYALGIA [None]
  - CORONARY ARTERIAL STENT INSERTION [None]
  - PAIN [None]
  - CARDIAC DISORDER [None]
